FAERS Safety Report 19960543 (Version 1)
Quarter: 2021Q4

REPORT INFORMATION
  Report Type: Spontaneous
  Country: US (occurrence: US)
  Receive Date: 20211015
  Receipt Date: 20211015
  Transmission Date: 20220303
  Serious: Yes (Death, Hospitalization, Other)
  Sender: FDA-Public Use
  Company Number: 2021A769907

PATIENT
  Age: 66 Year
  Sex: Female

DRUGS (15)
  1. OLAPARIB [Suspect]
     Active Substance: OLAPARIB
     Route: 048
     Dates: start: 20200313
  2. KISQALI [Suspect]
     Active Substance: RIBOCICLIB
     Indication: Ovarian cancer
     Route: 048
     Dates: start: 20201109, end: 20201231
  3. ZOFRAN [Concomitant]
     Active Substance: ONDANSETRON HYDROCHLORIDE
     Indication: Nausea
     Route: 048
  4. ATIVAN [Concomitant]
     Active Substance: LORAZEPAM
     Indication: Anxiety
     Dosage: 0.5 TABLETS EVERY 6 HOURS
     Route: 048
  5. FEMARA [Concomitant]
     Active Substance: LETROZOLE
     Dosage: 1 TABLET DAILY
     Route: 048
  6. LIPITOR [Concomitant]
     Active Substance: ATORVASTATIN CALCIUM
     Dosage: 1 TABLET NIGHTLY
     Route: 048
  7. OXYGEN [Concomitant]
     Active Substance: OXYGEN
     Dosage: INHALE 2 L INTO THE LUNGS CONTINUOUS AIR CONCENTRATOR AT HOME, PORTABLE O2 TANK AS WELL
  8. ASPIRIN [Concomitant]
     Active Substance: ASPIRIN
  9. BREO ELLIPTA [Concomitant]
     Active Substance: FLUTICASONE FUROATE\VILANTEROL TRIFENATATE
     Dosage: 1 PUFF DAILY
  10. PROAIR RESPICLICK [Concomitant]
     Active Substance: ALBUTEROL SULFATE
     Indication: Wheezing
     Dosage: 1 PUFF DAILY
  11. PROAIR RESPICLICK [Concomitant]
     Active Substance: ALBUTEROL SULFATE
     Indication: Dyspnoea
     Dosage: 1 PUFF DAILY
  12. LOPRESSOR [Concomitant]
     Active Substance: METOPROLOL TARTRATE
     Dosage: 12.5 MG DAILY TAKE 0.5 TAB DAILY
  13. EMLA [Concomitant]
     Active Substance: LIDOCAINE\PRILOCAINE
  14. VITAMINS [Concomitant]
     Active Substance: VITAMINS
  15. NITROSTAT [Concomitant]
     Active Substance: NITROGLYCERIN
     Dosage: 1.0DF AS REQUIRED
     Route: 060

REACTIONS (13)
  - Acute kidney injury [Fatal]
  - Discomfort [Unknown]
  - Malignant neoplasm progression [Unknown]
  - Nausea [Unknown]
  - Chest pain [Unknown]
  - Pleural effusion [Unknown]
  - Vomiting [Unknown]
  - Pain [Unknown]
  - Constipation [Unknown]
  - Dyspepsia [Unknown]
  - Loss of personal independence in daily activities [Unknown]
  - Mental status changes [Unknown]
  - Asthenia [Unknown]

NARRATIVE: CASE EVENT DATE: 20200423
